FAERS Safety Report 4515189-3 (Version None)
Quarter: 2004Q4

REPORT INFORMATION
  Report Type: 
  Country: None (occurrence: None)
  Receive Date: 20041129
  Receipt Date: 20041129
  Transmission Date: 20050328
  Serious: Yes (Life-Threatening, Hospitalization, Disabling)
  Sender: FDA-Public Use
  Company Number: None

PATIENT
  Sex: Male
  Weight: 81.6475 kg

DRUGS (3)
  1. ISOTRETINOIN [Suspect]
     Indication: ACNE
     Dosage: ORAL THERAPY
     Dates: start: 19880101, end: 19880101
  2. ISOTRETINOIN [Suspect]
     Indication: PROPHYLAXIS
     Dosage: ORAL THERAPY
     Dates: start: 19880101, end: 19880101
  3. ISOTRETINOIN [Suspect]
     Indication: SCAR
     Dosage: ORAL THERAPY
     Dates: start: 19880101, end: 19880101

REACTIONS (10)
  - BODY FAT DISORDER [None]
  - CHRONIC MYELOID LEUKAEMIA [None]
  - DRUG TOXICITY [None]
  - ENDOCRINE DISORDER [None]
  - HEPATIC CIRRHOSIS [None]
  - HYPERTROPHY [None]
  - METABOLIC DISORDER [None]
  - MYELOFIBROSIS [None]
  - STRESS SYMPTOMS [None]
  - VIRAL LOAD [None]
